FAERS Safety Report 4536652-5 (Version None)
Quarter: 2004Q4

REPORT INFORMATION
  Report Type: 
  Country: None (occurrence: None)
  Receive Date: 20041220
  Receipt Date: 20041203
  Transmission Date: 20050328
  Serious: Yes (Hospitalization, Other)
  Sender: FDA-Public Use
  Company Number: 203657

PATIENT
  Age: 55 Year
  Sex: Male
  Weight: 59.8748 kg

DRUGS (5)
  1. AVONEX [Suspect]
     Dosage: SEE IMAGE
     Route: 030
     Dates: start: 20040101, end: 20040101
  2. AVONEX [Suspect]
     Dosage: SEE IMAGE
     Route: 030
     Dates: start: 20040101, end: 20040101
  3. AVONEX [Suspect]
     Dosage: SEE IMAGE
     Route: 030
     Dates: start: 20040429, end: 20040101
  4. AVONEX [Suspect]
     Dosage: SEE IMAGE
     Route: 030
     Dates: start: 20040101, end: 20040701
  5. AVONEX [Suspect]
     Dosage: SEE IMAGE
     Route: 030
     Dates: start: 20040701

REACTIONS (6)
  - GASTRIC DISORDER [None]
  - HEPATIC STEATOSIS [None]
  - INFLUENZA LIKE ILLNESS [None]
  - INJECTION SITE HAEMORRHAGE [None]
  - INJECTION SITE PAIN [None]
  - RENAL ONCOCYTOMA [None]
